FAERS Safety Report 9288923 (Version 2)
Quarter: 2013Q2

REPORT INFORMATION
  Report Type: Spontaneous
  Country: US (occurrence: US)
  Receive Date: 20130514
  Receipt Date: 20130613
  Transmission Date: 20140414
  Serious: No
  Sender: FDA-Public Use
  Company Number: US-TEVA-405036USA

PATIENT
  Age: 18 Year
  Sex: Female
  Weight: 45.85 kg

DRUGS (1)
  1. PLAN B ONE-STEP [Suspect]
     Indication: POST COITAL CONTRACEPTION
     Dosage: 1.5 MILLIGRAM DAILY;
     Route: 048
     Dates: start: 201304, end: 201304

REACTIONS (2)
  - Abdominal distension [Recovered/Resolved]
  - Menstruation irregular [Recovered/Resolved]
